FAERS Safety Report 8476312 (Version 4)
Quarter: 2014Q1

REPORT INFORMATION
  Report Type: Spontaneous
  Country: US (occurrence: None)
  Receive Date: 20120316
  Receipt Date: 20140327
  Transmission Date: 20141002
  Serious: Yes (Hospitalization, Other)
  Sender: FDA-Public Use
  Company Number: JPI-P-016103

PATIENT
  Age: 53 Year
  Sex: Male
  Weight: 122.7 kg

DRUGS (15)
  1. XYREM [Suspect]
     Indication: NARCOLEPSY
     Route: 048
     Dates: start: 20061228
  2. XYREM [Suspect]
     Indication: CATAPLEXY
     Route: 048
     Dates: start: 20061228
  3. ATORVASTATIN (ATORVASTATIN) [Suspect]
     Indication: PRODUCT USED FOR UNKNOWN INDICATION
  4. PROMETHAZINE [Concomitant]
  5. FUROSEMIDE [Concomitant]
  6. MELOXICAM [Concomitant]
  7. ASPIRIN [Concomitant]
  8. POTASSIUM SCHLORIDE [Concomitant]
  9. ANDROGEL (TESTOSTERONE) [Concomitant]
  10. METOLAZONE [Concomitant]
  11. OXYCODONE HYDROCHLORIDE [Concomitant]
  12. HYDROCODONE/ACETAMINOPHEN [Concomitant]
  13. ROPINIROLE [Concomitant]
  14. DULOXETINE [Concomitant]
  15. VITAMIN D [Suspect]
     Indication: VITAMIN D DECREASED

REACTIONS (10)
  - Bipolar disorder [None]
  - Intervertebral disc protrusion [None]
  - Hallucination, auditory [None]
  - Intervertebral disc compression [None]
  - Incision site infection [None]
  - Device dislocation [None]
  - Somnolence [None]
  - Post procedural infection [None]
  - Central venous catheterisation [None]
  - Myalgia [None]
